FAERS Safety Report 4653327-2 (Version None)
Quarter: 2005Q2

REPORT INFORMATION
  Report Type: 
  Country: None (occurrence: None)
  Receive Date: 20050505
  Receipt Date: 20050428
  Transmission Date: 20051028
  Serious: Yes (Hospitalization)
  Sender: FDA-Public Use
  Company Number: 200511503FR

PATIENT
  Age: 63 Year
  Sex: Female

DRUGS (3)
  1. LOVENOX [Suspect]
     Indication: THROMBOSIS PROPHYLAXIS
     Route: 058
     Dates: start: 20050316, end: 20050323
  2. CELEBREX [Suspect]
     Route: 048
     Dates: start: 20050316, end: 20050323
  3. OGAST [Concomitant]
     Route: 048
     Dates: start: 20050316, end: 20050316

REACTIONS (2)
  - ARTHRALGIA [None]
  - VASCULAR PURPURA [None]
